FAERS Safety Report 8834227 (Version 1)
Quarter: 2012Q4

REPORT INFORMATION
  Report Type: 
  Country: US (occurrence: US)
  Receive Date: 20121010
  Receipt Date: 20121010
  Transmission Date: 20130627
  Serious: No
  Sender: FDA-Public Use
  Company Number: US-009507513-1210USA003347

PATIENT
  Age: 53 Year
  Sex: Male

DRUGS (3)
  1. VICTRELIS [Suspect]
     Indication: HEPATITIS C
     Dosage: 4 DF, tid
     Route: 048
  2. RIBASPHERE [Suspect]
  3. PEGASYS [Suspect]

REACTIONS (1)
  - Oral candidiasis [Recovering/Resolving]
